FAERS Safety Report 7453193-6 (Version None)
Quarter: 2011Q2

REPORT INFORMATION
  Report Type: 
  Country: None (occurrence: None)
  Receive Date: 20110502
  Receipt Date: 20110420
  Transmission Date: 20111010
  Serious: Yes (Other)
  Sender: FDA-Public Use
  Company Number: JP-BAYER-2011-034056

PATIENT
  Age: 70 Year
  Sex: Female

DRUGS (1)
  1. CIPROXAN-I.V.300 [Suspect]
     Indication: PRODUCT USED FOR UNKNOWN INDICATION
     Dosage: 300 MG, QD
     Route: 041

REACTIONS (1)
  - RENAL TUBULAR NECROSIS [None]
